FAERS Safety Report 4457162-X (Version None)
Quarter: 2004Q3

REPORT INFORMATION
  Report Type: 
  Country: None (occurrence: None)
  Receive Date: 20040921
  Receipt Date: 20040909
  Transmission Date: 20050211
  Serious: Yes (Hospitalization)
  Sender: FDA-Public Use
  Company Number: 208980

PATIENT
  Age: 66 Year
  Sex: Female

DRUGS (1)
  1. AVASTIN [Suspect]
     Indication: COLORECTAL CANCER METASTATIC
     Dosage: 400MG,Q2W, INTRAVENOUS
     Route: 042
     Dates: start: 20040611

REACTIONS (3)
  - PROTEINURIA [None]
  - PULMONARY EMBOLISM [None]
  - RECTAL HAEMORRHAGE [None]
